FAERS Safety Report 19941003 (Version 1)
Quarter: 2021Q4

REPORT INFORMATION
  Report Type: Spontaneous
  Country: US (occurrence: US)
  Receive Date: 20211011
  Receipt Date: 20211011
  Transmission Date: 20220303
  Serious: No
  Sender: FDA-Public Use
  Company Number: US-CELGENE-USA-20211001307

PATIENT
  Age: 43 Year
  Sex: Female
  Weight: 72.64 kg

DRUGS (1)
  1. ZEPOSIA [Suspect]
     Active Substance: OZANIMOD HYDROCHLORIDE
     Indication: Colitis ulcerative
     Dosage: .23 MILLIGRAM
     Route: 048
     Dates: start: 20210903, end: 20210927

REACTIONS (2)
  - Heart rate increased [Unknown]
  - Headache [Unknown]

NARRATIVE: CASE EVENT DATE: 20211002
